FAERS Safety Report 6770631-2 (Version None)
Quarter: 2010Q2

REPORT INFORMATION
  Report Type: 
  Country: None (occurrence: None)
  Receive Date: 20100615
  Receipt Date: 20100602
  Transmission Date: 20101027
  Serious: Yes (Other)
  Sender: FDA-Public Use
  Company Number: ES-GENENTECH-302735

PATIENT
  Age: 35 Year
  Sex: Female

DRUGS (1)
  1. RITUXIMAB [Suspect]
     Indication: NEUROMYELITIS OPTICA
     Dosage: 375 MG/M2, UNK
     Route: 042
     Dates: start: 20080401

REACTIONS (1)
  - REVERSIBLE POSTERIOR LEUKOENCEPHALOPATHY SYNDROME [None]
